FAERS Safety Report 7548352-8 (Version None)
Quarter: 2011Q2

REPORT INFORMATION
  Report Type: 
  Country: None (occurrence: None)
  Receive Date: 20110608
  Receipt Date: 20110525
  Transmission Date: 20111010
  Serious: Yes (Other)
  Sender: FDA-Public Use
  Company Number: 2011MA006611

PATIENT
  Sex: Male

DRUGS (7)
  1. DIGOXIN [Concomitant]
  2. WARFARIN SODIUM [Concomitant]
  3. SPIRIX [Concomitant]
  4. WARFARIN SODIUM [Concomitant]
  5. RAMIPRIL [Suspect]
     Indication: ATRIAL FIBRILLATION
     Dosage: 5 MG;
  6. LIPITOR [Concomitant]
  7. METOPROLOL SUCCINATE [Concomitant]

REACTIONS (4)
  - ARTHRALGIA [None]
  - MYALGIA [None]
  - HYPOAESTHESIA [None]
  - SKIN DISCOLOURATION [None]
